FAERS Safety Report 9427594 (Version 1)
Quarter: 2013Q3

REPORT INFORMATION
  Report Type: Report from Study
  Country: US (occurrence: US)
  Receive Date: 20130730
  Receipt Date: 20130730
  Transmission Date: 20140515
  Serious: No
  Sender: FDA-Public Use
  Company Number: US-ABBOTT-12P-163-1007396-00

PATIENT
  Age: 32 Year
  Sex: Female
  Weight: 54.93 kg

DRUGS (3)
  1. NIASPAN (COATED) [Suspect]
     Indication: LIPIDS ABNORMAL
     Dosage: 500MG AT NIGHT
     Dates: start: 20121030
  2. METHYLTETAHYDROFOLATE [Concomitant]
  3. CENTRUM [Concomitant]
     Indication: PRODUCT USED FOR UNKNOWN INDICATION

REACTIONS (2)
  - Flushing [Recovered/Resolved]
  - Paraesthesia [Recovered/Resolved]
